FAERS Safety Report 4791301-6 (Version None)
Quarter: 2005Q4

REPORT INFORMATION
  Report Type: 
  Country: None (occurrence: None)
  Receive Date: 20051007
  Receipt Date: 20050902
  Transmission Date: 20060501
  Serious: Yes (Hospitalization)
  Sender: FDA-Public Use
  Company Number: 200517732GDDC

PATIENT
  Age: 68 Year
  Sex: Female

DRUGS (8)
  1. EUGLUCON [Suspect]
     Indication: HYPERGLYCAEMIA
     Route: 048
     Dates: end: 20050712
  2. CAPECITABINE [Suspect]
     Indication: BREAST CANCER
     Route: 048
     Dates: start: 20050725, end: 20050807
  3. VELCADE [Suspect]
     Indication: BREAST CANCER
     Dosage: DOSE: 4 X PER 3 WEEK
     Route: 042
     Dates: start: 20050725, end: 20050804
  4. AROMASIN [Concomitant]
     Dates: start: 20050615, end: 20050615
  5. ALLOPURINOL [Concomitant]
  6. TRAMADOL [Concomitant]
  7. GABAPENTIN [Concomitant]
  8. UNKNOWN DRUG [Concomitant]

REACTIONS (2)
  - DIABETIC KETOACIDOSIS [None]
  - METABOLIC ACIDOSIS [None]
